FAERS Safety Report 10936522 (Version 1)
Quarter: 2015Q1

REPORT INFORMATION
  Report Type: Spontaneous
  Country: US (occurrence: None)
  Receive Date: 20150212
  Receipt Date: 20150212
  Transmission Date: 20150721
  Serious: No
  Sender: FDA-Public Use
  Company Number: TPA2011A05809

PATIENT
  Age: 64 Year
  Sex: Male
  Weight: 85.28 kg

DRUGS (5)
  1. ULORIC [Suspect]
     Active Substance: FEBUXOSTAT
     Indication: GOUT
     Route: 048
     Dates: start: 201105, end: 20110726
  2. HYDROCODONE [Concomitant]
     Active Substance: HYDROCODONE
  3. WARFARIN [Concomitant]
     Active Substance: WARFARIN
  4. ZOLPIDEM [Concomitant]
     Active Substance: ZOLPIDEM\ZOLPIDEM TARTRATE
  5. PREDNISONE. [Concomitant]
     Active Substance: PREDNISONE

REACTIONS (1)
  - Gout [None]

NARRATIVE: CASE EVENT DATE: 2011
